FAERS Safety Report 18567211 (Version 2)
Quarter: 2020Q4

REPORT INFORMATION
  Report Type: Spontaneous
  Country: US (occurrence: US)
  Receive Date: 20201202
  Receipt Date: 20201204
  Transmission Date: 20210114
  Serious: Yes (Hospitalization)
  Sender: FDA-Public Use
  Company Number: US-JNJFOC-20201139400

PATIENT
  Age: 37 Year
  Sex: Female
  Weight: 66.74 kg

DRUGS (2)
  1. NEOSPORIN ECZEMA ESSENTIALS DAILY MOISTURIZING [Suspect]
     Active Substance: OATMEAL
     Indication: DRY SKIN
     Dosage: A QUARTER THRICE A DAY
     Route: 061
     Dates: start: 20201014, end: 20201113
  2. NEOSPORIN ECZEMA ESSENTIALS DAILY MOISTURIZING [Suspect]
     Active Substance: OATMEAL
     Indication: PRURITUS

REACTIONS (3)
  - Blister [Not Recovered/Not Resolved]
  - Skin irritation [Recovered/Resolved]
  - Pruritus [Not Recovered/Not Resolved]

NARRATIVE: CASE EVENT DATE: 20201113
